FAERS Safety Report 6618083-7 (Version None)
Quarter: 2010Q1

REPORT INFORMATION
  Report Type: 
  Country: None (occurrence: None)
  Receive Date: 20100302
  Receipt Date: 20100224
  Transmission Date: 20100710
  Serious: Yes (Other)
  Sender: FDA-Public Use
  Company Number: 2010SP006834

PATIENT
  Age: 6 Year
  Sex: Male

DRUGS (2)
  1. DIPRODERM (TOPICAL) (BETAMETHASONE DIPROPIONATE) [Suspect]
     Indication: DRUG USE FOR UNKNOWN INDICATION
  2. REVAXIS (CON.) /00315001/ [Concomitant]

REACTIONS (1)
  - TYPE 1 DIABETES MELLITUS [None]
